FAERS Safety Report 9268640 (Version 1)
Quarter: 2013Q2

REPORT INFORMATION
  Report Type: Spontaneous
  Country: US (occurrence: US)
  Receive Date: 20130502
  Receipt Date: 20130502
  Transmission Date: 20140414
  Serious: No
  Sender: FDA-Public Use
  Company Number: US-ALEXION-A201300074

PATIENT
  Age: 72 Year
  Sex: Male
  Weight: 87.1 kg

DRUGS (8)
  1. SOLIRIS 300MG [Suspect]
     Indication: PAROXYSMAL NOCTURNAL HAEMOGLOBINURIA
     Dosage: 600 MG, QW
     Route: 042
     Dates: start: 20121127, end: 20121227
  2. SOLIRIS 300MG [Suspect]
     Dosage: 900 MG, Q2W
     Route: 042
     Dates: start: 20121227
  3. HYDROCHLOROTHIAZIDE [Concomitant]
     Dosage: UNK
  4. TERAZOSIN [Concomitant]
     Dosage: UNK
  5. IMDUR [Concomitant]
     Dosage: UNK
  6. PRAVASTATIN [Concomitant]
     Dosage: UNK
  7. OMEPRAZOLE [Concomitant]
     Dosage: UNK
  8. CIPRO [Concomitant]
     Indication: PROPHYLAXIS
     Dosage: UNK

REACTIONS (4)
  - Drug ineffective [Not Recovered/Not Resolved]
  - Dyspnoea [Not Recovered/Not Resolved]
  - Haemoglobin decreased [Not Recovered/Not Resolved]
  - Fatigue [Not Recovered/Not Resolved]
